FAERS Safety Report 10219171 (Version 1)
Quarter: 2014Q2

REPORT INFORMATION
  Report Type: Spontaneous
  Country: DE (occurrence: DE)
  Receive Date: 20140605
  Receipt Date: 20140605
  Transmission Date: 20141212
  Serious: Yes (Death, Hospitalization)
  Sender: FDA-Public Use
  Company Number: DE-ABBVIE-14P-062-1244586-00

PATIENT
  Age: 67 Year
  Sex: Female
  Weight: 60 kg

DRUGS (3)
  1. HUMIRA [Suspect]
     Indication: POLYARTHRITIS
     Route: 058
     Dates: start: 201011, end: 201111
  2. HUMIRA [Suspect]
     Route: 058
     Dates: start: 201201, end: 201206
  3. ARAVA [Concomitant]
     Indication: PRODUCT USED FOR UNKNOWN INDICATION
     Dates: start: 201005

REACTIONS (20)
  - Hydrocephalus [Fatal]
  - Cerebral haemorrhage [Fatal]
  - Cerebral ventricle dilatation [Fatal]
  - Brain oedema [Fatal]
  - Encephalitis [Fatal]
  - Tuberculosis of central nervous system [Fatal]
  - Acute respiratory failure [Unknown]
  - Mydriasis [Unknown]
  - Dizziness [Unknown]
  - Abdominal pain upper [Unknown]
  - Pyrexia [Unknown]
  - Headache [Unknown]
  - Hyponatraemia [Unknown]
  - Hypoxia [Unknown]
  - Syncope [Unknown]
  - Urinary tract infection [Unknown]
  - Mycobacterial infection [Unknown]
  - Circulatory collapse [Unknown]
  - Unevaluable event [Unknown]
  - Pupils unequal [Unknown]
